FAERS Safety Report 8510677 (Version 3)
Quarter: 2013Q1

REPORT INFORMATION
  Report Type: Spontaneous
  Country: US (occurrence: US)
  Receive Date: 20120413
  Receipt Date: 20130321
  Transmission Date: 20140127
  Serious: Yes (Hospitalization, Other)
  Sender: FDA-Public Use
  Company Number: US-GILEAD-2012-0053415

PATIENT
  Age: 74 Year
  Sex: Male

DRUGS (11)
  1. LETAIRIS [Suspect]
     Indication: PULMONARY HYPERTENSION
     Dosage: 5 MG, UNK
     Route: 048
     Dates: start: 20120222, end: 20120323
  2. TREPROSTINIL [Suspect]
     Indication: PULMONARY HYPERTENSION
     Dosage: 216 ?G, QID
     Route: 055
     Dates: start: 20120222
  3. ASPIRIN [Concomitant]
  4. ATIVAN [Concomitant]
  5. AVAPRO [Concomitant]
  6. COMBIVENT [Concomitant]
  7. HUMALOG [Concomitant]
  8. LYRICA [Concomitant]
  9. SIMVASTATIN [Concomitant]
  10. VICODIN [Concomitant]
  11. VITAMIN B12 NOS [Concomitant]

REACTIONS (4)
  - Acute respiratory failure [Recovered/Resolved]
  - Atrial fibrillation [Unknown]
  - Iron deficiency anaemia [Unknown]
  - Fluid retention [Unknown]
